FAERS Safety Report 13128422 (Version 1)
Quarter: 2017Q1

REPORT INFORMATION
  Report Type: Report from Study
  Country: None (occurrence: US)
  Receive Date: 20170118
  Receipt Date: 20170118
  Transmission Date: 20170428
  Serious: Yes (Other)
  Sender: FDA-Public Use
  Company Number: US-ABBVIE-16K-163-1681573-00

PATIENT
  Age: 64 Year
  Sex: Female
  Weight: 48.58 kg

DRUGS (13)
  1. HUMIRA [Suspect]
     Active Substance: ADALIMUMAB
     Indication: CROHN^S DISEASE
     Route: 058
     Dates: start: 201603, end: 2016
  2. PROMETHAZINE [Concomitant]
     Active Substance: PROMETHAZINE\PROMETHAZINE HYDROCHLORIDE
     Indication: NAUSEA
  3. VITAMIN B12 [Concomitant]
     Active Substance: CYANOCOBALAMIN
     Indication: PRODUCT USED FOR UNKNOWN INDICATION
  4. CALCIUM [Concomitant]
     Active Substance: CALCIUM
     Indication: PRODUCT USED FOR UNKNOWN INDICATION
  5. HYDROCODONE BITARTRATE AND ACETAMINOPHEN [Concomitant]
     Active Substance: ACETAMINOPHEN\HYDROCODONE BITARTRATE
     Indication: PRODUCT USED FOR UNKNOWN INDICATION
  6. WELCHOL [Concomitant]
     Active Substance: COLESEVELAM HYDROCHLORIDE
     Indication: BLOOD CHOLESTEROL INCREASED
  7. AMITRIPTYLINE [Concomitant]
     Active Substance: AMITRIPTYLINE
     Indication: DEPRESSION
  8. HYDROCODONE/ACETAMINOPHEN [Concomitant]
     Active Substance: ACETAMINOPHEN\HYDROCODONE
     Indication: PAIN
  9. PROBIOTIC [Concomitant]
     Active Substance: PROBIOTICS NOS
     Indication: CROHN^S DISEASE
  10. PANTOPRAZOLE [Concomitant]
     Active Substance: PANTOPRAZOLE SODIUM
     Indication: GASTROOESOPHAGEAL REFLUX DISEASE
  11. VITAMIN D [Concomitant]
     Active Substance: CHOLECALCIFEROL
     Indication: PRODUCT USED FOR UNKNOWN INDICATION
  12. HUMIRA [Suspect]
     Active Substance: ADALIMUMAB
     Route: 058
     Dates: start: 201604
  13. NICOTINE TRANSDERMAL SYSTEM [Concomitant]
     Active Substance: NICOTINE
     Indication: SMOKING CESSATION THERAPY

REACTIONS (9)
  - Intracranial aneurysm [Not Recovered/Not Resolved]
  - Aura [Not Recovered/Not Resolved]
  - Skin exfoliation [Unknown]
  - Eye infection [Recovered/Resolved]
  - Nausea [Unknown]
  - Rash macular [Not Recovered/Not Resolved]
  - Rash pruritic [Unknown]
  - Superficial injury of eye [Not Recovered/Not Resolved]
  - Eye infection [Unknown]

NARRATIVE: CASE EVENT DATE: 201607
